FAERS Safety Report 6453335-5 (Version None)
Quarter: 2009Q4

REPORT INFORMATION
  Report Type: 
  Country: None (occurrence: None)
  Receive Date: 20091124
  Receipt Date: 20091116
  Transmission Date: 20100525
  Serious: Yes (Other)
  Sender: FDA-Public Use
  Company Number: US-ASTRAZENECA-2009SE20420

PATIENT
  Age: 44 Year
  Sex: Female

DRUGS (3)
  1. SEROQUEL XR [Suspect]
     Indication: BIPOLAR I DISORDER
     Route: 048
  2. NEXIUM [Concomitant]
  3. HYDROCHLOROTHIAZIDE [Concomitant]

REACTIONS (6)
  - DRY MOUTH [None]
  - FATIGUE [None]
  - MUSCLE SPASMS [None]
  - NOCTURIA [None]
  - PRURITUS [None]
  - RESTLESS LEGS SYNDROME [None]
